FAERS Safety Report 20200561 (Version 1)
Quarter: 2021Q4

REPORT INFORMATION
  Report Type: Spontaneous
  Country: US (occurrence: None)
  Receive Date: 20211216
  Receipt Date: 20211216
  Transmission Date: 20220303
  Serious: Yes (Life-Threatening)
  Sender: FDA-Public Use
  Company Number: None

PATIENT
  Age: 68 Year
  Sex: Male
  Weight: 103.05 kg

DRUGS (6)
  1. TAMOXIFEN [Suspect]
     Active Substance: TAMOXIFEN
     Indication: Weight decreased
     Dates: start: 20211111
  2. ANASTROZOLE [Suspect]
     Active Substance: ANASTROZOLE
     Dates: start: 20211111
  3. TESTOSTERONE [Suspect]
     Active Substance: TESTOSTERONE
  4. IBUTAMOREN [Suspect]
     Active Substance: IBUTAMOREN
  5. METOPROLOL SUCCINATE [Concomitant]
     Active Substance: METOPROLOL SUCCINATE
  6. PANTOPRAZOLE [Concomitant]
     Active Substance: PANTOPRAZOLE

REACTIONS (6)
  - Off label use [None]
  - Pulmonary embolism [None]
  - Deep vein thrombosis [None]
  - Acute coronary syndrome [None]
  - Cerebrovascular accident [None]
  - Pyrexia [None]

NARRATIVE: CASE EVENT DATE: 20211214
